FAERS Safety Report 18048899 (Version 1)
Quarter: 2020Q3

REPORT INFORMATION
  Report Type: Spontaneous
  Country: US (occurrence: US)
  Receive Date: 20200721
  Receipt Date: 20200721
  Transmission Date: 20201103
  Serious: Yes (Hospitalization)
  Sender: FDA-Public Use
  Company Number: US-BAYER-2020-139021

PATIENT
  Age: 38 Year
  Sex: Female

DRUGS (1)
  1. ALKA?SELTZER HEARTBURN RELIEFCHEWS [Suspect]
     Active Substance: CALCIUM CARBONATE
     Indication: GASTROINTESTINAL DISORDER
     Dosage: 2 DF, QD
     Route: 048
     Dates: start: 20200705, end: 20200705

REACTIONS (3)
  - Peripheral swelling [Recovered/Resolved]
  - Blood pressure increased [Recovered/Resolved]
  - Paraesthesia [Recovered/Resolved]

NARRATIVE: CASE EVENT DATE: 20200706
